FAERS Safety Report 15298886 (Version 1)
Quarter: 2018Q4

REPORT INFORMATION
  Report Type: Spontaneous
  Country: BE (occurrence: GB)
  Receive Date: 20180821
  Receipt Date: 20180821
  Transmission Date: 20190204
  Serious: Yes (Other)
  Sender: FDA-Public Use
  Company Number: BE-ROCHE-2170968

PATIENT
  Age: 52 Year
  Sex: Female

DRUGS (7)
  1. PLEVITREXED [Suspect]
     Active Substance: PLEVITREXED
     Indication: OVARIAN CANCER
     Dosage: UNK?MOST RECENT DOSE IN /MAR/2001
     Route: 065
     Dates: start: 200011
  2. CARBOPLATIN. [Suspect]
     Active Substance: CARBOPLATIN
     Indication: OVARIAN CANCER
     Dosage: UNK?MOST RECENT DOSE IN MAR/2001
     Route: 065
     Dates: start: 200011
  3. EPIRUBICIN HYDROCHLORIDE. [Suspect]
     Active Substance: EPIRUBICIN HYDROCHLORIDE
     Indication: OVARIAN CANCER
     Dosage: UNK?MOST RECENT DOSE IN /MAR/2003
     Route: 065
     Dates: start: 200210
  4. PACLITAXEL. [Suspect]
     Active Substance: PACLITAXEL
     Indication: OVARIAN CANCER
     Dosage: UNK?MOST RECENT DOSE ON /JUN/1997
     Route: 065
     Dates: start: 199702
  5. CISPLATIN. [Suspect]
     Active Substance: CISPLATIN
     Indication: OVARIAN CANCER
     Dosage: UNK?MOST RECENT DOSE IN /JUN/1997
     Route: 065
     Dates: start: 199702
  6. CAPECITABINE. [Suspect]
     Active Substance: CAPECITABINE
     Indication: OVARIAN CANCER
     Dosage: UNK?MOST RECENT DOSE ON /MAR/2003
     Route: 065
     Dates: start: 200210
  7. CARBOPLATIN. [Suspect]
     Active Substance: CARBOPLATIN
     Dosage: UNK
     Route: 065
     Dates: start: 200210, end: 200303

REACTIONS (1)
  - Scleroderma [Not Recovered/Not Resolved]

NARRATIVE: CASE EVENT DATE: 200202
